FAERS Safety Report 9224214 (Version 1)
Quarter: 2013Q2

REPORT INFORMATION
  Report Type: Spontaneous
  Country: US (occurrence: US)
  Receive Date: 20130411
  Receipt Date: 20130411
  Transmission Date: 20140414
  Serious: No
  Sender: FDA-Public Use
  Company Number: US-PFIZER INC-2013114802

PATIENT
  Age: 65 Year
  Sex: Female
  Weight: 70.3 kg

DRUGS (4)
  1. CHANTIX [Suspect]
     Indication: SMOKING CESSATION THERAPY
     Dosage: 0.5 MG, 1X/DAY
     Dates: start: 2008
  2. CHANTIX [Suspect]
     Dosage: 0.5 MG, 2X/DAY
     Dates: end: 2008
  3. LISINOPRIL W/HYDROCHLOROTHIAZIDE [Concomitant]
     Indication: HYPERTENSION
     Dosage: [LISINOPRIL 20 MG]/[HYDROCHLOROTHIAZIDE 12.5 MG],1X/DAY
  4. ESTRADIOL [Concomitant]
     Dosage: 1 MG, DAILY

REACTIONS (3)
  - Drug ineffective [Unknown]
  - Abnormal dreams [Recovered/Resolved]
  - Nightmare [Recovered/Resolved]
